FAERS Safety Report 10056255 (Version 1)
Quarter: 2014Q2

REPORT INFORMATION
  Report Type: Spontaneous
  Country: FR (occurrence: FR)
  Receive Date: 20140403
  Receipt Date: 20140403
  Transmission Date: 20141212
  Serious: Yes (Hospitalization)
  Sender: FDA-Public Use
  Company Number: FR-PFIZER INC-2014089540

PATIENT
  Age: 56 Year
  Sex: Male

DRUGS (13)
  1. ALDACTONE [Suspect]
     Dosage: 50 MG, DAILY
     Route: 048
     Dates: end: 201402
  2. BACTRIM [Suspect]
     Indication: PROPHYLAXIS
     Dosage: UNK
     Route: 065
     Dates: start: 20140109, end: 20140117
  3. LASILIX SPECIAL [Suspect]
     Dosage: STRENGTH:  500 MG
     Route: 048
     Dates: end: 201402
  4. MIRTAZAPINE [Concomitant]
     Dosage: 15 MG, DAILY
     Route: 048
     Dates: start: 20140207
  5. BECILAN [Concomitant]
     Dosage: 250 MG, DAILY
     Route: 048
  6. BEVITINE [Concomitant]
     Dosage: 2 DF, DAILY (500 MG, DAILY)
     Route: 048
  7. CALCIPARIN [Concomitant]
     Dosage: 0.3 ML, 2X/DAY
     Route: 058
  8. DAFALGAN CODEINE [Concomitant]
     Dosage: UNK
     Route: 048
  9. INEXIUM /01479302/ [Concomitant]
     Dosage: 20 MG, DAILY
     Route: 048
  10. TRUVADA [Concomitant]
     Dosage: 1 DF (200MG/245MG), DAILY
     Route: 048
     Dates: end: 20140214
  11. PREZISTA [Concomitant]
     Dosage: UNK
     Route: 048
     Dates: end: 20140214
  12. NORVIR [Concomitant]
     Dosage: UNK
     Route: 048
     Dates: end: 20140214
  13. ROCEPHINE [Concomitant]
     Indication: ANTIBIOTIC THERAPY
     Dosage: 1 G, DAILY

REACTIONS (4)
  - Renal failure acute [Recovered/Resolved]
  - Hepatocellular injury [Recovered/Resolved]
  - Pneumocystis jirovecii pneumonia [Unknown]
  - Rash [Recovered/Resolved]
